FAERS Safety Report 6796751-4 (Version None)
Quarter: 2010Q2

REPORT INFORMATION
  Report Type: 
  Country: None (occurrence: None)
  Receive Date: 20100622
  Receipt Date: 20100608
  Transmission Date: 20101027
  Serious: Yes (Hospitalization)
  Sender: FDA-Public Use
  Company Number: US-JNJFOC-20091203058

PATIENT
  Age: 79 Year
  Sex: Male
  Weight: 85.7298 kg

DRUGS (16)
  1. DECITABINE (DECITABINE) LYOPHILIZED POWDER [Suspect]
     Indication: MYELODYSPLASTIC SYNDROME
     Dosage: 39 MG, SUBCUTANEOUS
     Route: 058
     Dates: start: 20091116
  2. FOLIC ACID [Concomitant]
  3. METOPROLOL (METOPROLOL) UNSPECIFIED [Concomitant]
  4. PLAVIX (CLOPIDOGREL) UNSPECIFIED [Concomitant]
  5. RAMIPRIL (RAMIPRIL) UNSPECIFIED [Concomitant]
  6. FUROSEMIDE (FUROSEMIDE) UNSPECIFIED [Concomitant]
  7. TRAMADOL (TRAMADOL) UNSPECIFIED [Concomitant]
  8. AMBIEN (ZOLPIDEM TARTRATE) UNSPECIFIED [Concomitant]
  9. CARAFATE (SUCRALFATE) UNSPECIFIED [Concomitant]
  10. SPIRIVA (TIOTROPIUM BROMIDE) UNSPECIFIED [Concomitant]
  11. ADVAIR DISKUS 100/50 [Concomitant]
  12. VITAMIN C (ASCORBIC ACID) UNSPECIFIED [Concomitant]
  13. MULTIVITAMINS (MULTIVITAMINS) TABLETS [Concomitant]
  14. MEGACE (MEGESTROL ACETATE) UNSPECIFIED [Concomitant]
  15. ULTRAM [Concomitant]
  16. ASPIRIN (ACETYLSLICYLIC ACID) [Concomitant]

REACTIONS (16)
  - ANAEMIA [None]
  - ANGINA PECTORIS [None]
  - ARTERIOVENOUS MALFORMATION [None]
  - ASTHENIA [None]
  - CHILLS [None]
  - CHRONIC OBSTRUCTIVE PULMONARY DISEASE [None]
  - CONSTIPATION [None]
  - DYSPNOEA [None]
  - FATIGUE [None]
  - GASTROINTESTINAL HAEMORRHAGE [None]
  - HAEMOGLOBIN DECREASED [None]
  - HYPOAESTHESIA [None]
  - LOBAR PNEUMONIA [None]
  - PRODUCTIVE COUGH [None]
  - PULMONARY OEDEMA [None]
  - PYREXIA [None]
